FAERS Safety Report 15469968 (Version 3)
Quarter: 2018Q4

REPORT INFORMATION
  Report Type: Report from Study
  Country: DE (occurrence: DE)
  Receive Date: 20181005
  Receipt Date: 20181129
  Transmission Date: 20190205
  Serious: Yes (Hospitalization)
  Sender: FDA-Public Use
  Company Number: DE-CELGENEUS-DEU-20180909857

PATIENT
  Age: 60 Year
  Sex: Female
  Weight: 52 kg

DRUGS (35)
  1. CC-4047 [Suspect]
     Active Substance: POMALIDOMIDE
     Indication: PLASMA CELL MYELOMA
     Dosage: 4 MILLIGRAM
     Route: 048
     Dates: start: 20170330, end: 20170419
  2. CC-4047 [Suspect]
     Active Substance: POMALIDOMIDE
     Dosage: 4 MILLIGRAM
     Route: 048
     Dates: start: 20180702, end: 20180716
  3. DEXAMETHASONE ORAL [Suspect]
     Active Substance: DEXAMETHASONE
     Indication: PLASMA CELL MYELOMA
     Dosage: 40 MILLIGRAM
     Route: 048
     Dates: start: 20170330, end: 20170420
  4. DEXAMETHASONE ORAL [Suspect]
     Active Substance: DEXAMETHASONE
     Dosage: 40 MILLIGRAM
     Route: 048
     Dates: start: 20180702, end: 20180716
  5. CISPLATIN. [Suspect]
     Active Substance: CISPLATIN
     Indication: PLASMA CELL MYELOMA
     Dosage: 15 MILLIGRAM
     Route: 041
     Dates: start: 20180801
  6. BORTEZOMIB. [Suspect]
     Active Substance: BORTEZOMIB
     Indication: PLASMA CELL MYELOMA
     Dosage: 1.5 MILLIGRAM
     Route: 058
     Dates: start: 20180801
  7. CYCLOPHOSPHAMIDE. [Suspect]
     Active Substance: CYCLOPHOSPHAMIDE
     Indication: PLASMA CELL MYELOMA
     Dosage: 580 MILLIGRAM
     Route: 041
     Dates: start: 20180801
  8. FILGRASTIM [Concomitant]
     Active Substance: FILGRASTIM
     Indication: PANCYTOPENIA
     Dosage: 30 IU (INTERNATIONAL UNIT)
     Route: 058
     Dates: start: 20180922, end: 20180923
  9. GRANULOCYTE-COLONY STIMULATING FACTOR [Concomitant]
     Active Substance: FILGRASTIM
     Indication: PRODUCT USED FOR UNKNOWN INDICATION
     Route: 065
  10. JONOSTERIL [Concomitant]
     Dosage: 1000 MILLILITER
     Route: 041
     Dates: start: 20180928, end: 20180928
  11. KALIUMCHLORID [Concomitant]
     Active Substance: POTASSIUM CHLORIDE
     Dosage: 40 MILLIMOLE
     Route: 041
     Dates: start: 20181003, end: 20181003
  12. MEDI4736 (DURVALUMAB) [Suspect]
     Active Substance: DURVALUMAB
     Dosage: 1500 MILLIGRAM
     Route: 041
     Dates: start: 20180702, end: 20180702
  13. DEXAMETHASONE ORAL [Suspect]
     Active Substance: DEXAMETHASONE
     Dosage: 40 MILLIGRAM
     Route: 048
     Dates: start: 20180801
  14. MESNA. [Concomitant]
     Active Substance: MESNA
     Indication: PLASMA CELL MYELOMA
     Dosage: 400 MILLIGRAM
     Route: 041
     Dates: start: 20180801
  15. CORTIM FORTE [Concomitant]
     Indication: INFECTION PROPHYLAXIS
     Dosage: 960 MILLIGRAM
     Route: 048
     Dates: start: 2016, end: 20180920
  16. PEGFILGRASTIM [Concomitant]
     Active Substance: PEGFILGRASTIM
     Indication: PROPHYLAXIS
     Route: 058
     Dates: start: 20180805
  17. FLUVASTATIN [Concomitant]
     Active Substance: FLUVASTATIN SODIUM
     Indication: TYPE IIB HYPERLIPIDAEMIA
     Dosage: 80 MILLIGRAM
     Route: 048
     Dates: start: 20180807, end: 20180921
  18. KALIUMCHLORID [Concomitant]
     Active Substance: POTASSIUM CHLORIDE
     Indication: PROPHYLAXIS
     Dosage: 60 MILLIMOLE
     Route: 041
     Dates: start: 20180928, end: 20180928
  19. JONOSTERIL [Concomitant]
     Dosage: 1000 MILLILITER
     Route: 041
     Dates: start: 20180924, end: 20180925
  20. JONOSTERIL [Concomitant]
     Dosage: 500 MILLILITER
     Route: 041
     Dates: start: 20180926, end: 20180930
  21. JONOSTERIL [Concomitant]
     Dosage: 1000 MILLILITER
     Route: 041
     Dates: start: 20181002, end: 20181003
  22. CALCIMAGON [Concomitant]
     Active Substance: CALCIUM
     Indication: PROPHYLAXIS
     Dosage: 1000 MILLIGRAM
     Route: 048
     Dates: start: 20180618, end: 20180922
  23. JONOSTERIL [Concomitant]
     Route: 041
     Dates: start: 20180923, end: 20180923
  24. BLEMAREN [Concomitant]
     Indication: URINARY TRACT INFECTION
     Dosage: 3 OTHER
     Route: 048
     Dates: start: 20180627, end: 20180922
  25. DOXORUBICIN [Suspect]
     Active Substance: DOXORUBICIN
     Indication: PLASMA CELL MYELOMA
     Dosage: 15 MILLIGRAM
     Route: 041
     Dates: start: 20180801
  26. FILGRASTIM [Concomitant]
     Active Substance: FILGRASTIM
     Dosage: 48 IU (INTERNATIONAL UNIT)
     Route: 058
     Dates: start: 20180925
  27. ETOPOSIDE. [Suspect]
     Active Substance: ETOPOSIDE
     Indication: PLASMA CELL MYELOMA
     Dosage: 60 MILLIGRAM
     Route: 041
     Dates: start: 20180801
  28. L-THYROXIN [Concomitant]
     Active Substance: LEVOTHYROXINE SODIUM
     Indication: THYROIDECTOMY
     Dosage: 100 MICROGRAM
     Route: 048
     Dates: start: 2016
  29. LOPERAMIDE [Concomitant]
     Active Substance: LOPERAMIDE
     Indication: DIARRHOEA
     Route: 048
     Dates: start: 20180924, end: 20180924
  30. OCTAGAM IMMUNE GLOBULIN (HUMAN) [Concomitant]
     Active Substance: HUMAN IMMUNOGLOBULIN G
     Indication: INFECTION
     Dosage: 10 MILLIGRAM
     Route: 041
     Dates: start: 20180922, end: 20180923
  31. MEDI4736 (DURVALUMAB) [Suspect]
     Active Substance: DURVALUMAB
     Indication: PLASMA CELL MYELOMA
     Dosage: 1500 MILLIGRAM
     Route: 041
     Dates: start: 20170330, end: 20170330
  32. THALIDOMIDE [Suspect]
     Active Substance: THALIDOMIDE
     Indication: PLASMA CELL MYELOMA
     Dosage: 50 MILLIGRAM
     Route: 048
     Dates: start: 20180802, end: 20180919
  33. JONOSTERIL [Concomitant]
     Indication: PROPHYLAXIS
     Dosage: 1000 MILLILITER
     Route: 041
     Dates: start: 20180922, end: 20180922
  34. MONOEMBOLEX [Concomitant]
     Active Substance: CERTOPARIN SODIUM
     Indication: THROMBOSIS PROPHYLAXIS
     Dosage: .3 MILLILITER
     Route: 058
     Dates: start: 20180808, end: 20180921
  35. KALIUMCHLORID [Concomitant]
     Active Substance: POTASSIUM CHLORIDE
     Dosage: 80 MILLIMOLE
     Route: 041
     Dates: start: 20181002, end: 20181002

REACTIONS (4)
  - Gastroenteritis clostridial [Recovered/Resolved]
  - Mucosal inflammation [Recovered/Resolved]
  - Urinary tract infection bacterial [Recovered/Resolved]
  - Klebsiella sepsis [Recovered/Resolved]

NARRATIVE: CASE EVENT DATE: 20180922
